FAERS Safety Report 5735048-8 (Version None)
Quarter: 2008Q2

REPORT INFORMATION
  Report Type: 
  Country: None (occurrence: None)
  Receive Date: 20080512
  Receipt Date: 20080430
  Transmission Date: 20081010
  Serious: No
  Sender: FDA-Public Use
  Company Number: CR-ROCHE-562142

PATIENT
  Sex: Female
  Weight: 54 kg

DRUGS (1)
  1. ROACCUTANE [Suspect]
     Indication: ACNE
     Route: 048
     Dates: start: 20080303, end: 20080415

REACTIONS (1)
  - ABORTION INDUCED [None]
